FAERS Safety Report 25990717 (Version 1)
Quarter: 2025Q4

REPORT INFORMATION
  Report Type: Spontaneous
  Country: US (occurrence: US)
  Receive Date: 20251103
  Receipt Date: 20251103
  Transmission Date: 20260117
  Serious: Yes (Other)
  Sender: MYLAN
  Company Number: US-MYLANLABS-2025M1091166

PATIENT
  Sex: Female

DRUGS (1)
  1. BREYNA [Suspect]
     Active Substance: BUDESONIDE\FORMOTEROL FUMARATE
     Indication: Asthma
     Dosage: 160 PER 4.5 MICROGRAM, BID (TWICE A DAY)

REACTIONS (3)
  - Herpes ophthalmic [Unknown]
  - Corneal leukoplakia [Unknown]
  - Corneal abrasion [Unknown]
